FAERS Safety Report 5625989-4 (Version None)
Quarter: 2008Q1

REPORT INFORMATION
  Report Type: 
  Country: None (occurrence: None)
  Receive Date: 20080214
  Receipt Date: 20080208
  Transmission Date: 20080703
  Serious: Yes (Death, Other)
  Sender: FDA-Public Use
  Company Number: PHNU2008DE00807

PATIENT
  Age: 56 Year
  Sex: Male
  Weight: 109 kg

DRUGS (7)
  1. ZOMETA [Suspect]
     Indication: METASTASES TO BONE
     Dosage: 4 MG, UNK
     Route: 042
     Dates: start: 20050101, end: 20060201
  2. IRINOTECAN [Concomitant]
     Indication: COLON CANCER METASTATIC
     Dosage: 185 MG, QW
     Dates: start: 20050106, end: 20050908
  3. FOLIC ACID [Concomitant]
     Indication: COLON CANCER METASTATIC
     Dosage: 1175 MG, QW
     Dates: start: 20050106, end: 20060814
  4. FLUOROURACIL [Concomitant]
     Indication: COLON CANCER METASTATIC
     Dosage: 4620 MG, QW
     Dates: start: 20050106, end: 20060814
  5. BEVACIZUMAB [Concomitant]
     Indication: COLON CANCER METASTATIC
     Dosage: 575 MG, BIW
     Dates: start: 20050225, end: 20050811
  6. DEXAMETHASONE TAB [Concomitant]
     Indication: COLON CANCER METASTATIC
     Dosage: 8 MG, QW
     Dates: start: 20050106, end: 20060814
  7. RADIOTHERAPY [Concomitant]

REACTIONS (6)
  - DISEASE PROGRESSION [None]
  - ORAL SURGERY [None]
  - OSTEOMYELITIS [None]
  - OSTEONECROSIS [None]
  - OSTEOTOMY [None]
  - TOOTH EXTRACTION [None]
